FAERS Safety Report 5455633-0 (Version None)
Quarter: 2007Q4

REPORT INFORMATION
  Report Type: 
  Country: None (occurrence: None)
  Receive Date: 20070914
  Receipt Date: 20070504
  Transmission Date: 20080405
  Serious: Yes (Hospitalization)
  Sender: FDA-Public Use
  Company Number: MC200700349

PATIENT
  Age: 77 Year
  Sex: Female
  Weight: 63 kg

DRUGS (20)
  1. ANGIOMAX [Suspect]
     Dosage: 48.8 MG, BOLUS, IV BOLUS; 110 MG,HR, INTRAVENOUS
     Route: 040
     Dates: start: 20070423, end: 20070423
  2. ANGIOMAX [Suspect]
     Dosage: 48.8 MG, BOLUS, IV BOLUS; 110 MG,HR, INTRAVENOUS
     Route: 040
     Dates: start: 20070423, end: 20070423
  3. HEPARIN [Suspect]
     Dosage: 5100 IU
     Dates: start: 20070423
  4. ASPIRIN [Suspect]
     Dosage: 81 MG, QD, ORAL
     Route: 048
  5. PLAVIX [Suspect]
     Dosage: 300 MG, ORAL; 75 MG, QD, ORAL
     Route: 048
     Dates: start: 20070423
  6. PLAVIX [Suspect]
     Dosage: 300 MG, ORAL; 75 MG, QD, ORAL
     Route: 048
     Dates: start: 20070424
  7. TEGRETOL [Concomitant]
  8. SYNTHROID [Concomitant]
  9. LAMICTAL [Concomitant]
  10. ADVAIR DISKUS 100/50 [Concomitant]
  11. VERSED [Concomitant]
  12. NITROGLYCERIN [Concomitant]
  13. NALOXONE [Concomitant]
  14. MORPHINE SULFATE [Concomitant]
  15. NITROGLYCERIN (GLYCERYL TRINITRATE) PATCH [Concomitant]
  16. PROTONIX [Concomitant]
  17. PEPCID [Concomitant]
  18. CLINDAMYCIN (CLINDAMYCIN) [Concomitant]
  19. LOVASTATIN [Concomitant]
  20. LASIX [Concomitant]

REACTIONS (3)
  - ANAEMIA [None]
  - POST PROCEDURAL HAEMATOMA [None]
  - VASCULAR PSEUDOANEURYSM [None]
